FAERS Safety Report 5479688-2 (Version None)
Quarter: 2007Q4

REPORT INFORMATION
  Report Type: 
  Country: None (occurrence: None)
  Receive Date: 20071008
  Receipt Date: 20071002
  Transmission Date: 20080405
  Serious: Yes (Other)
  Sender: FDA-Public Use
  Company Number: B0490120A

PATIENT
  Age: 10 Year
  Sex: Female
  Weight: 39.5 kg

DRUGS (1)
  1. VENTOLIN [Suspect]
     Indication: DRUG USE FOR UNKNOWN INDICATION
     Route: 055
     Dates: start: 20070727, end: 20070727

REACTIONS (3)
  - APPLICATION SITE DISCOLOURATION [None]
  - BURNING SENSATION [None]
  - THERMAL BURN [None]
